FAERS Safety Report 4948109-8 (Version None)
Quarter: 2006Q1

REPORT INFORMATION
  Report Type: 
  Country: None (occurrence: None)
  Receive Date: 20060320
  Receipt Date: 20060310
  Transmission Date: 20060701
  Serious: Yes (Hospitalization)
  Sender: FDA-Public Use
  Company Number: US-JNJFOC-20060303669

PATIENT
  Sex: Female

DRUGS (5)
  1. DURAGESIC-100 [Suspect]
     Route: 062
  2. DURAGESIC-100 [Suspect]
     Route: 062
  3. DURAGESIC-100 [Suspect]
     Route: 062
  4. KADIAN [Concomitant]
     Indication: PAIN
  5. HYDROMORPHONE HCL [Concomitant]
     Indication: PAIN

REACTIONS (4)
  - BACK PAIN [None]
  - DRUG WITHDRAWAL SYNDROME [None]
  - NAUSEA [None]
  - NERVE COMPRESSION [None]
